FAERS Safety Report 18965989 (Version 1)
Quarter: 2021Q1

REPORT INFORMATION
  Report Type: Spontaneous
  Country: CA (occurrence: CA)
  Receive Date: 20210304
  Receipt Date: 20210304
  Transmission Date: 20210420
  Serious: Yes (Life-Threatening, Hospitalization, Other)
  Sender: FDA-Public Use
  Company Number: CA-BAUSCH-BL-2021-006650

PATIENT
  Age: 56 Year
  Sex: Female
  Weight: 69 kg

DRUGS (16)
  1. RASILEZ [Suspect]
     Active Substance: ALISKIREN
     Indication: HYPERTENSION
  2. AMLODIPINE [Suspect]
     Active Substance: AMLODIPINE BESYLATE
     Indication: PRODUCT USED FOR UNKNOWN INDICATION
     Route: 048
  3. ESOMEPRAZOLE. [Suspect]
     Active Substance: ESOMEPRAZOLE MAGNESIUM
     Indication: PRODUCT USED FOR UNKNOWN INDICATION
     Route: 048
  4. RASILEZ [Suspect]
     Active Substance: ALISKIREN
     Indication: OFF LABEL USE
     Route: 065
  5. SANDOZ IRBESARTAN [Suspect]
     Active Substance: IRBESARTAN
     Indication: HYPERTENSION
     Route: 048
  6. IRBESARTAN. [Suspect]
     Active Substance: IRBESARTAN
     Route: 065
  7. ASA [Concomitant]
     Active Substance: ASPIRIN
     Indication: PRODUCT USED FOR UNKNOWN INDICATION
  8. METFORMIN [Concomitant]
     Active Substance: METFORMIN HYDROCHLORIDE
     Indication: PRODUCT USED FOR UNKNOWN INDICATION
  9. IRBESARTAN. [Suspect]
     Active Substance: IRBESARTAN
     Indication: HYPERTENSION
     Route: 048
  10. RASILEZ [Suspect]
     Active Substance: ALISKIREN
     Indication: MICROALBUMINURIA
  11. ACETYLSALICYLIC ACID [Suspect]
     Active Substance: ASPIRIN
     Indication: PRODUCT USED FOR UNKNOWN INDICATION
     Route: 048
  12. LIPITOR [Suspect]
     Active Substance: ATORVASTATIN CALCIUM
     Indication: PRODUCT USED FOR UNKNOWN INDICATION
     Route: 048
  13. METFORMIN [Suspect]
     Active Substance: METFORMIN HYDROCHLORIDE
     Indication: PRODUCT USED FOR UNKNOWN INDICATION
     Route: 048
  14. JANUVIA [Suspect]
     Active Substance: SITAGLIPTIN PHOSPHATE
     Indication: PRODUCT USED FOR UNKNOWN INDICATION
     Route: 048
  15. AVAPRO [Concomitant]
     Active Substance: IRBESARTAN
     Indication: PRODUCT USED FOR UNKNOWN INDICATION
  16. VITAMIN B12 [Concomitant]
     Active Substance: CYANOCOBALAMIN
     Indication: HYPERTENSION

REACTIONS (23)
  - Anxiety [Unknown]
  - Hemiplegia [Unknown]
  - Muscle spasticity [Unknown]
  - Neurologic neglect syndrome [Unknown]
  - Adjustment disorder [Unknown]
  - Confusional state [Unknown]
  - Coordination abnormal [Unknown]
  - Motor dysfunction [Unknown]
  - Affect lability [Unknown]
  - Carotid artery thrombosis [Unknown]
  - Fall [Unknown]
  - Impaired work ability [Unknown]
  - Personality disorder [Unknown]
  - Aphasia [Unknown]
  - Sensory loss [Unknown]
  - Nausea [Unknown]
  - Asthenia [Unknown]
  - Cerebrovascular accident [Unknown]
  - Eating disorder [Unknown]
  - Dysarthria [Unknown]
  - Dysphagia [Unknown]
  - Hemiparesis [Unknown]
  - Muscular weakness [Unknown]
